FAERS Safety Report 16880248 (Version 1)
Quarter: 2019Q4

REPORT INFORMATION
  Report Type: Spontaneous
  Country: CA (occurrence: CA)
  Receive Date: 20191003
  Receipt Date: 20191003
  Transmission Date: 20200122
  Serious: Yes (Disabling)
  Sender: FDA-Public Use
  Company Number: CA-AUROBINDO-AUR-APL-2019-063192

PATIENT
  Age: 47 Year
  Sex: Female

DRUGS (4)
  1. TYLENOL WITH CODEINE [Concomitant]
     Active Substance: ACETAMINOPHEN\CODEINE PHOSPHATE
     Indication: PRODUCT USED FOR UNKNOWN INDICATION
     Dosage: UNK
     Route: 065
  2. LEVOFLOXACIN. [Suspect]
     Active Substance: LEVOFLOXACIN
     Indication: SINUSITIS
     Dosage: 500 MILLIGRAM, ONCE A DAY
     Route: 048
  3. CIPROFLOXACIN FILM-COATED TABLETS [Suspect]
     Active Substance: CIPROFLOXACIN
     Indication: URINARY TRACT INFECTION
     Dosage: 1000 MILLIGRAM, ONCE A DAY
     Route: 048
  4. OXYCONTIN [Concomitant]
     Active Substance: OXYCODONE HYDROCHLORIDE
     Indication: PRODUCT USED FOR UNKNOWN INDICATION
     Dosage: UNK
     Route: 065

REACTIONS (33)
  - Fatigue [Recovering/Resolving]
  - Peripheral swelling [Recovering/Resolving]
  - Chest pain [Recovering/Resolving]
  - Costochondritis [Recovering/Resolving]
  - Dizziness [Recovering/Resolving]
  - Extraocular muscle disorder [Recovering/Resolving]
  - Myalgia [Recovering/Resolving]
  - Vein disorder [Recovering/Resolving]
  - Abdominal pain [Recovering/Resolving]
  - Heart rate irregular [Recovering/Resolving]
  - Joint noise [Recovering/Resolving]
  - Muscle twitching [Recovering/Resolving]
  - Pelvic pain [Recovering/Resolving]
  - Dysphonia [Recovering/Resolving]
  - Muscular weakness [Recovering/Resolving]
  - Photosensitivity reaction [Recovering/Resolving]
  - Tremor [Recovering/Resolving]
  - Arthritis [Recovering/Resolving]
  - Bursitis [Recovering/Resolving]
  - Glucose tolerance impaired [Recovering/Resolving]
  - Oropharyngeal pain [Recovering/Resolving]
  - Photophobia [Recovering/Resolving]
  - Blood pressure decreased [Recovering/Resolving]
  - Dysphagia [Recovering/Resolving]
  - Dyspnoea [Recovering/Resolving]
  - Lymph node pain [Recovering/Resolving]
  - Tendon rupture [Recovering/Resolving]
  - Gastrooesophageal reflux disease [Recovering/Resolving]
  - Illusion [Recovering/Resolving]
  - Meniscus injury [Recovering/Resolving]
  - Pollakiuria [Recovering/Resolving]
  - Synovial cyst [Recovering/Resolving]
  - Tinnitus [Recovering/Resolving]
